FAERS Safety Report 6567262-6 (Version None)
Quarter: 2010Q1

REPORT INFORMATION
  Report Type: 
  Country: None (occurrence: None)
  Receive Date: 20100202
  Receipt Date: 20100128
  Transmission Date: 20100710
  Serious: Yes (Other)
  Sender: FDA-Public Use
  Company Number: GB-BAYER-201014026GPV

PATIENT
  Sex: Female
  Weight: 59 kg

DRUGS (3)
  1. MOXIFLOXACIN HCL [Suspect]
     Indication: LATENT TUBERCULOSIS
     Route: 048
     Dates: start: 20091118, end: 20091221
  2. PYRAZINAMIDE [Concomitant]
     Indication: LATENT TUBERCULOSIS
     Route: 048
     Dates: start: 20091118, end: 20091201
  3. LEVOFLOXACIN [Concomitant]
     Indication: DRUG USE FOR UNKNOWN INDICATION

REACTIONS (5)
  - ABDOMINAL PAIN [None]
  - CHILLS [None]
  - NAUSEA [None]
  - PYREXIA [None]
  - VOMITING [None]
